FAERS Safety Report 16265072 (Version 1)
Quarter: 2019Q2

REPORT INFORMATION
  Report Type: Spontaneous
  Country: US (occurrence: US)
  Receive Date: 20190501
  Receipt Date: 20190501
  Transmission Date: 20190711
  Serious: Yes (Hospitalization, Disabling)
  Sender: FDA-Public Use
  Company Number: None

PATIENT
  Sex: Female

DRUGS (1)
  1. LOSARTAN/HCTZ [Suspect]
     Active Substance: HYDROCHLOROTHIAZIDE\LOSARTAN
     Indication: HYPERTENSION
     Dosage: ?          QUANTITY:1 TABLET(S);?
     Route: 048

REACTIONS (11)
  - Skin discolouration [None]
  - Pain in extremity [None]
  - Skin disorder [None]
  - Recalled product administered [None]
  - Product formulation issue [None]
  - Dermatitis [None]
  - Dry skin [None]
  - Fall [None]
  - Skin exfoliation [None]
  - Balance disorder [None]
  - Muscular weakness [None]
